FAERS Safety Report 16533021 (Version 1)
Quarter: 2019Q3

REPORT INFORMATION
  Report Type: Spontaneous
  Country: US (occurrence: US)
  Receive Date: 20190704
  Receipt Date: 20190704
  Transmission Date: 20191004
  Serious: No
  Sender: FDA-Public Use
  Company Number: US-RECKITT BENCKISER HEALTHCARE INT LIMITED-RB-84884-2019

PATIENT
  Age: 65 Year
  Sex: Female

DRUGS (1)
  1. MUCINEX DM MAXIMUM STRENGTH [Suspect]
     Active Substance: DEXTROMETHORPHAN HYDROBROMIDE\GUAIFENESIN
     Indication: PRODUCT USED FOR UNKNOWN INDICATION
     Dosage: PATIENT TOOK 2 TABLETS ABOUT 8 AM THIS MORNING AND ANOTHER ONE TABLET ABOUT 6 HOURS LATER
     Route: 065
     Dates: start: 20190428

REACTIONS (4)
  - Irritability [Unknown]
  - Overdose [Unknown]
  - Agitation [Unknown]
  - Incorrect product administration duration [Unknown]
